FAERS Safety Report 6859916-9 (Version None)
Quarter: 2010Q3

REPORT INFORMATION
  Report Type: 
  Country: None (occurrence: None)
  Receive Date: 20100720
  Receipt Date: 20100706
  Transmission Date: 20110219
  Serious: Yes (Other)
  Sender: FDA-Public Use
  Company Number: IE-RANBAXY-2010RR-35868

PATIENT

DRUGS (1)
  1. CLARITHROMYCIN [Suspect]
     Dosage: 500 MG, BID
     Route: 048

REACTIONS (5)
  - DYSPNOEA [None]
  - HEARING IMPAIRED [None]
  - HYPERHIDROSIS [None]
  - MUSCLE SPASMS [None]
  - VISUAL IMPAIRMENT [None]
